FAERS Safety Report 5820383-5 (Version None)
Quarter: 2008Q3

REPORT INFORMATION
  Report Type: 
  Country: None (occurrence: None)
  Receive Date: 20080724
  Receipt Date: 20070620
  Transmission Date: 20090109
  Serious: No
  Sender: FDA-Public Use
  Company Number: A0658963A

PATIENT
  Age: 44 Year
  Sex: Female

DRUGS (4)
  1. AVANDIA [Suspect]
     Dosage: 1000MG TWICE PER DAY
     Route: 048
     Dates: start: 20050101
  2. METFORMIN [Concomitant]
  3. UNKNOWN MEDICATION [Concomitant]
  4. NITROGLYCERIN [Concomitant]

REACTIONS (5)
  - CARDIAC DISORDER [None]
  - CARDIAC MURMUR [None]
  - DIZZINESS [None]
  - ELECTROCARDIOGRAM ABNORMAL [None]
  - PALPITATIONS [None]
